FAERS Safety Report 10010719 (Version 2)
Quarter: 2014Q1

REPORT INFORMATION
  Report Type: Spontaneous
  Country: US (occurrence: US)
  Receive Date: 20140314
  Receipt Date: 20140314
  Transmission Date: 20141002
  Serious: No
  Sender: FDA-Public Use
  Company Number: US-DRREDDYS-USA/USA/13/0028552

PATIENT
  Sex: Female
  Weight: 89.89 kg

DRUGS (4)
  1. FEXOFENADINE HCL OTC [Suspect]
     Indication: URTICARIA
     Route: 048
     Dates: start: 20130309
  2. CETIRIZINE 10 MG [Suspect]
     Indication: URTICARIA
     Route: 050
  3. SYNTHROID [Concomitant]
     Indication: THYROID DISORDER
     Route: 065
  4. FOLIC ACID [Concomitant]
     Indication: PRODUCT USED FOR UNKNOWN INDICATION
     Route: 065

REACTIONS (4)
  - Asthenia [Unknown]
  - Dyspnoea [Unknown]
  - Hyperhidrosis [Unknown]
  - Urticaria [Unknown]
